FAERS Safety Report 5082608-6 (Version None)
Quarter: 2006Q3

REPORT INFORMATION
  Report Type: 
  Country: None (occurrence: None)
  Receive Date: 20060814
  Receipt Date: 20060803
  Transmission Date: 20061208
  Serious: Yes (Hospitalization)
  Sender: FDA-Public Use
  Company Number: CIP06001810

PATIENT

DRUGS (1)
  1. DIDRONEL [Suspect]
     Indication: RHEUMATOID ARTHRITIS
     Dosage: 200 MG, ORAL
     Route: 048
     Dates: start: 20060701, end: 20060101

REACTIONS (1)
  - THROMBOCYTOPENIA [None]
